FAERS Safety Report 25304188 (Version 1)
Quarter: 2025Q2

REPORT INFORMATION
  Report Type: Spontaneous
  Country: FR (occurrence: FR)
  Receive Date: 20250513
  Receipt Date: 20250513
  Transmission Date: 20250716
  Serious: Yes (Hospitalization)
  Sender: ROCHE
  Company Number: None

PATIENT
  Age: 53 Year
  Sex: Female

DRUGS (12)
  1. TRASTUZUMAB [Suspect]
     Active Substance: TRASTUZUMAB
     Indication: Breast cancer metastatic
     Route: 065
     Dates: end: 201805
  2. TRASTUZUMAB [Suspect]
     Active Substance: TRASTUZUMAB
     Route: 065
     Dates: start: 202003
  3. TRASTUZUMAB [Suspect]
     Active Substance: TRASTUZUMAB
     Route: 065
     Dates: start: 202102
  4. TRASTUZUMAB [Suspect]
     Active Substance: TRASTUZUMAB
     Dosage: UNK, QWK
     Route: 065
  5. PERTUZUMAB [Suspect]
     Active Substance: PERTUZUMAB
     Indication: Breast cancer metastatic
     Route: 065
     Dates: end: 201805
  6. LETROZOLE [Concomitant]
     Active Substance: LETROZOLE
  7. CARBOPLATIN [Concomitant]
     Active Substance: CARBOPLATIN
  8. PACLITAXEL [Concomitant]
     Active Substance: PACLITAXEL
     Dosage: UNK, QWK
  9. DOCETAXEL [Concomitant]
     Active Substance: DOCETAXEL
     Dates: start: 201805
  10. ADO-TRASTUZUMAB EMTANSINE [Concomitant]
     Active Substance: ADO-TRASTUZUMAB EMTANSINE
     Dates: start: 2018
  11. VINORELBINE [Concomitant]
     Active Substance: VINORELBINE TARTRATE
     Route: 048
     Dates: start: 202003
  12. GEMCITABINE [Concomitant]
     Active Substance: GEMCITABINE
     Dates: start: 202102

REACTIONS (3)
  - Cardiac failure acute [Recovering/Resolving]
  - Thrombotic thrombocytopenic purpura [Unknown]
  - Off label use [Unknown]
